FAERS Safety Report 21662469 (Version 1)
Quarter: 2022Q4

REPORT INFORMATION
  Report Type: Report from Study
  Country: US (occurrence: US)
  Receive Date: 20221130
  Receipt Date: 20221130
  Transmission Date: 20230113
  Serious: No
  Sender: FDA-Public Use
  Company Number: US-ABBVIE-4167986

PATIENT
  Sex: Female

DRUGS (4)
  1. HUMIRA [Suspect]
     Active Substance: ADALIMUMAB
     Indication: Rheumatoid arthritis
     Dosage: FORM STRENGTH: 40MG?CITRATE FREE
     Route: 058
  2. MODERNA COVID-19 VACCINE [Suspect]
     Active Substance: ELASOMERAN
     Indication: COVID-19 immunisation
     Dosage: FREQUENCY 1 IN ONCE ?1ST DOSE
     Route: 030
     Dates: start: 20201228, end: 20201228
  3. MODERNA COVID-19 VACCINE [Suspect]
     Active Substance: ELASOMERAN
     Indication: COVID-19 immunisation
     Dosage: FREQUENCY 1 IN ONCE ?2ND DOSE
     Route: 030
     Dates: start: 20210128, end: 20210128
  4. MODERNA COVID-19 VACCINE [Suspect]
     Active Substance: ELASOMERAN
     Indication: COVID-19 immunisation
     Dosage: FREQUENCY 1 IN ONCE ?3RD DOSE?COVID BOOSTER VACCINE
     Route: 030
     Dates: start: 20220127, end: 20220127

REACTIONS (2)
  - Maternal exposure during pregnancy [Unknown]
  - Vaccination site pain [Unknown]
